FAERS Safety Report 9240817 (Version 1)
Quarter: 2013Q1

REPORT INFORMATION
  Report Type: Spontaneous
  Country: US (occurrence: None)
  Receive Date: 20121120
  Receipt Date: 20121120
  Transmission Date: 20140127
  Serious: No
  Sender: FDA-Public Use
  Company Number: 1000039593

PATIENT
  Age: 27 Year
  Sex: Female

DRUGS (3)
  1. VIIBRYD [Suspect]
     Indication: GENERALISED ANXIETY DISORDER
     Dosage: 10 MG (10 MG, 1 IN 1 D), ORAL
     Route: 048
     Dates: start: 20121004, end: 20121010
  2. VIIBRYD [Suspect]
     Indication: GENERALISED ANXIETY DISORDER
     Dosage: 20 MG, (20 MG, 1 IN 1 D), ORAL
     Route: 048
     Dates: start: 20121011, end: 20121013
  3. CAFFEINE [Suspect]
     Dosage: STOPPED

REACTIONS (9)
  - Sleep paralysis [None]
  - Sleep terror [None]
  - Hallucination [None]
  - Panic attack [None]
  - Irritability [None]
  - Nausea [None]
  - Headache [None]
  - Drug ineffective [None]
  - Off label use [None]
